FAERS Safety Report 7827911-9 (Version None)
Quarter: 2011Q4

REPORT INFORMATION
  Report Type: 
  Country: None (occurrence: None)
  Receive Date: 20111020
  Receipt Date: 20111006
  Transmission Date: 20120403
  Serious: Yes (Disabling)
  Sender: FDA-Public Use
  Company Number: DE-CELGENEUS-062-21880-11090031

PATIENT
  Age: 76 Year
  Sex: Female
  Weight: 53.25 kg

DRUGS (9)
  1. REVLIMID [Suspect]
     Indication: MULTIPLE MYELOMA
     Dosage: 25 MILLIGRAM
     Route: 048
     Dates: start: 20101001, end: 20110201
  2. REVLIMID [Suspect]
     Dosage: 25 MILLIGRAM
     Route: 048
     Dates: start: 20110701, end: 20110901
  3. ENOXAPARIN SODIUM [Concomitant]
     Dosage: 60 MILLIGRAM
     Dates: start: 20110701, end: 20110901
  4. ZOMETA [Concomitant]
     Indication: MULTIPLE MYELOMA
  5. LACTULOSE [Concomitant]
     Route: 065
  6. DEXAMETHASONE [Concomitant]
     Indication: MULTIPLE MYELOMA
     Dates: start: 20101001, end: 20110201
  7. ENOXAPARIN SODIUM [Concomitant]
     Dosage: 60 MILLIGRAM
     Dates: start: 20101001, end: 20110201
  8. DEXAMETHASONE [Concomitant]
     Dates: start: 20110701, end: 20110901
  9. RAMIPRIL [Concomitant]
     Indication: HYPERTENSION
     Dosage: 5 MILLIGRAM

REACTIONS (1)
  - HEARING IMPAIRED [None]
